FAERS Safety Report 6651330-4 (Version None)
Quarter: 2010Q1

REPORT INFORMATION
  Report Type: 
  Country: None (occurrence: None)
  Receive Date: 20100325
  Receipt Date: 20100322
  Transmission Date: 20100710
  Serious: Yes (Death)
  Sender: FDA-Public Use
  Company Number: US-SANOFI-AVENTIS-2010SA008441

PATIENT
  Age: 71 Year
  Weight: 102.27 kg

DRUGS (7)
  1. MULTAQ [Suspect]
     Indication: ATRIAL FIBRILLATION
     Route: 048
     Dates: start: 20090912, end: 20100113
  2. METOPROLOL [Concomitant]
     Indication: CARDIOMYOPATHY
     Route: 048
     Dates: start: 20090901, end: 20100101
  3. CALCIUM CHANNEL BLOCKERS [Concomitant]
  4. GABAPENTIN [Concomitant]
     Dates: start: 20091001, end: 20100101
  5. FOLIC ACID [Concomitant]
     Route: 048
     Dates: start: 20090901, end: 20100101
  6. LISINOPRIL [Concomitant]
     Indication: CARDIOMYOPATHY
     Route: 048
     Dates: start: 20090701, end: 20100101
  7. WARFARIN SODIUM [Concomitant]
     Indication: ATRIAL FIBRILLATION
     Route: 048
     Dates: start: 20090701, end: 20100101

REACTIONS (2)
  - ANOXIC ENCEPHALOPATHY [None]
  - VENTRICULAR FIBRILLATION [None]
